FAERS Safety Report 8994629 (Version 1)
Quarter: 2012Q4

REPORT INFORMATION
  Report Type: Spontaneous
  Country: US (occurrence: None)
  Receive Date: 20121228
  Receipt Date: 20121228
  Transmission Date: 20130627
  Serious: Yes (Hospitalization)
  Sender: FDA-Public Use
  Company Number: None

PATIENT
  Sex: Female

DRUGS (5)
  1. RIBASPHERE [Suspect]
     Route: 048
     Dates: start: 20120827, end: 20121226
  2. RIBASPHERE [Suspect]
     Route: 048
  3. INCIVEK [Suspect]
     Route: 048
     Dates: start: 20120827, end: 20121107
  4. VALIUM [Concomitant]
  5. NAPROXEN [Concomitant]

REACTIONS (2)
  - Anaemia [None]
  - Neutropenia [None]
